FAERS Safety Report 9638683 (Version 2)
Quarter: 2013Q4

REPORT INFORMATION
  Report Type: Report from Study
  Country: BR (occurrence: BR)
  Receive Date: 20131022
  Receipt Date: 20131022
  Transmission Date: 20140711
  Serious: Yes (Other)
  Sender: FDA-Public Use
  Company Number: BR-ABBVIE-13P-020-1076816-00

PATIENT
  Sex: Male
  Weight: 74 kg

DRUGS (2)
  1. HUMIRA [Suspect]
     Indication: ANKYLOSING SPONDYLITIS
     Route: 058
     Dates: start: 20090813, end: 201211
  2. HUMIRA [Suspect]
     Route: 058
     Dates: start: 201301

REACTIONS (4)
  - Venous occlusion [Recovered/Resolved]
  - Infarction [Unknown]
  - Cardiac disorder [Unknown]
  - Diabetes mellitus [Unknown]
